FAERS Safety Report 11122298 (Version 1)
Quarter: 2015Q2

REPORT INFORMATION
  Report Type: Spontaneous
  Country: US (occurrence: None)
  Receive Date: 20150518
  Receipt Date: 20150518
  Transmission Date: 20150821
  Serious: Yes (Other)
  Sender: FDA-Public Use
  Company Number: None

PATIENT
  Age: 66 Year
  Sex: Female
  Weight: 73.48 kg

DRUGS (3)
  1. DULERA [Suspect]
     Active Substance: FORMOTEROL FUMARATE DIHYDRATE\MOMETASONE FUROATE
     Indication: DYSPNOEA
     Dosage: 2 PUFFS
     Route: 055
     Dates: start: 20150506, end: 20150514
  2. FISH OIL [Concomitant]
     Active Substance: FISH OIL
  3. D [Concomitant]

REACTIONS (2)
  - Rash [None]
  - Dysphonia [None]

NARRATIVE: CASE EVENT DATE: 20150511
